FAERS Safety Report 15330011 (Version 3)
Quarter: 2020Q3

REPORT INFORMATION
  Report Type: Spontaneous
  Country: DE (occurrence: DE)
  Receive Date: 20180829
  Receipt Date: 20200831
  Transmission Date: 20201102
  Serious: Yes (Hospitalization)
  Sender: FDA-Public Use
  Company Number: PHHY2018DE079758

PATIENT
  Age: 8 Decade
  Sex: Male
  Weight: 74 kg

DRUGS (16)
  1. DEXAMETHASONE. [Suspect]
     Active Substance: DEXAMETHASONE
     Indication: PLASMA CELL MYELOMA
     Dosage: 20 MG
     Route: 065
     Dates: start: 20180630, end: 20180707
  2. ASA [Concomitant]
     Active Substance: ASPIRIN
     Indication: PROPHYLAXIS
     Dosage: 100 MG, QD
     Route: 048
     Dates: start: 20180605
  3. BISOPROLOL [Concomitant]
     Active Substance: BISOPROLOL
     Indication: HYPERTENSION
     Dosage: 10 MILLIGRAM
     Route: 048
     Dates: start: 20180605
  4. NOVALGIN [Concomitant]
     Dosage: 4.5 MILLILITER
     Route: 048
     Dates: start: 20180605
  5. NOVALGIN [Concomitant]
     Indication: PROPHYLAXIS
     Dosage: 4.5 MG, QD
     Route: 048
     Dates: start: 20180605
  6. LIXIANA [Concomitant]
     Active Substance: EDOXABAN TOSYLATE
     Indication: ARRHYTHMIA
     Dosage: 30 MG, QD
     Route: 048
     Dates: start: 20180605
  7. TAMSULOSIN [Concomitant]
     Active Substance: TAMSULOSIN
     Indication: BENIGN PROSTATIC HYPERPLASIA
     Dosage: .4 MILLIGRAM
     Route: 048
     Dates: start: 20180605
  8. LISI LICH [Concomitant]
     Active Substance: LISINOPRIL
     Indication: HYPERTENSION
     Dosage: 5 MG, QD
     Route: 048
     Dates: start: 20180605
  9. BERLINSULIN H BASAL [Concomitant]
     Active Substance: INSULIN HUMAN
     Indication: TYPE 1 DIABETES MELLITUS
     Dosage: 24 IU (INTERNATIONAL UNIT)
     Route: 058
     Dates: start: 20180605
  10. ASA [Concomitant]
     Active Substance: ASPIRIN
     Indication: ARRHYTHMIA
     Dosage: UNK
     Route: 065
  11. L?THYROXINE [Concomitant]
     Active Substance: LEVOTHYROXINE
     Indication: POST PROCEDURAL HYPOTHYROIDISM
     Dosage: 75 UG, QD
     Route: 048
     Dates: start: 20180605
  12. NORSPAN [Concomitant]
     Active Substance: BUPRENORPHINE
     Indication: PROPHYLAXIS
     Dosage: 5 MG, QW
     Route: 062
     Dates: start: 20180627
  13. REVLIMID [Suspect]
     Active Substance: LENALIDOMIDE
     Dosage: UNK
     Route: 048
     Dates: start: 20180708, end: 20180720
  14. REVLIMID [Suspect]
     Active Substance: LENALIDOMIDE
     Indication: PLASMA CELL MYELOMA
     Dosage: 15 MG, UNK
     Route: 048
     Dates: start: 20180630, end: 20180707
  15. BERLINSULIN H NORMAL [Concomitant]
     Active Substance: INSULIN NOS
     Indication: TYPE 1 DIABETES MELLITUS
     Dosage: 48 IU (INTERNATIONAL UNIT)
     Route: 058
     Dates: start: 20180605
  16. PANTOPRAZOL [Concomitant]
     Active Substance: PANTOPRAZOLE SODIUM
     Indication: PROPHYLAXIS
     Dosage: 20 MG, QD
     Route: 048
     Dates: start: 20180605

REACTIONS (5)
  - Acute myocardial infarction [Recovered/Resolved]
  - Tachyarrhythmia [Recovered/Resolved]
  - General physical health deterioration [Not Recovered/Not Resolved]
  - Arrhythmia [Not Recovered/Not Resolved]
  - Hypertension [Recovered/Resolved]

NARRATIVE: CASE EVENT DATE: 20180707
